FAERS Safety Report 5977106-9 (Version None)
Quarter: 2008Q4

REPORT INFORMATION
  Report Type: 
  Country: None (occurrence: None)
  Receive Date: 20081202
  Receipt Date: 20081202
  Transmission Date: 20090506
  Serious: Yes (Life-Threatening)
  Sender: FDA-Public Use
  Company Number: None

PATIENT
  Age: 46 Day
  Sex: Male
  Weight: 4 kg

DRUGS (1)
  1. ERYTHROMYCIN SUSP 200MG/5ML [Suspect]
     Indication: OPHTHALMIA NEONATORUM
     Dosage: TO TAKE 1.2ML QID FOR 14 DAYS PO
     Route: 048
     Dates: start: 20081010, end: 20081113

REACTIONS (1)
  - PYLORIC STENOSIS [None]
